FAERS Safety Report 7780570-6 (Version None)
Quarter: 2011Q3

REPORT INFORMATION
  Report Type: 
  Country: None (occurrence: None)
  Receive Date: 20110923
  Receipt Date: 20110906
  Transmission Date: 20111222
  Serious: Yes (Other)
  Sender: FDA-Public Use
  Company Number: 2011AP001984

PATIENT
  Sex: Male

DRUGS (4)
  1. CIPROFLOXACIN [Suspect]
     Indication: KNEE OPERATION
     Dates: start: 20100509, end: 20100516
  2. CIPROFLOXACIN [Suspect]
     Indication: COUGH
     Dates: start: 20100509, end: 20100516
  3. CIPROFLOXACIN [Suspect]
     Indication: KNEE OPERATION
     Dates: start: 20100524, end: 20100530
  4. CIPROFLOXACIN [Suspect]
     Indication: COUGH
     Dates: start: 20100524, end: 20100530

REACTIONS (5)
  - MUSCULAR WEAKNESS [None]
  - ARTHRALGIA [None]
  - JOINT INJURY [None]
  - MYOSITIS [None]
  - MYALGIA [None]
